FAERS Safety Report 24726123 (Version 1)
Quarter: 2024Q4

REPORT INFORMATION
  Report Type: Spontaneous
  Country: FR (occurrence: FR)
  Receive Date: 20241212
  Receipt Date: 20241212
  Transmission Date: 20250115
  Serious: Yes (Other)
  Sender: HIKMA
  Company Number: None

PATIENT
  Age: 2 Year
  Sex: Male
  Weight: 14.2 kg

DRUGS (3)
  1. IRINOTECAN [Suspect]
     Active Substance: IRINOTECAN
     Indication: Neoplasm malignant
     Dosage: 50 MILLIGRAM/SQ. METER
     Route: 065
     Dates: start: 20241001
  2. TEMOZOLOMIDE [Suspect]
     Active Substance: TEMOZOLOMIDE
     Indication: Neuroblastoma
     Dosage: 100 MILLIGRAM/SQ. METER
     Route: 065
     Dates: start: 20241001
  3. DINUTUXIMAB BETA [Concomitant]
     Active Substance: DINUTUXIMAB BETA
     Indication: Neoplasm malignant
     Dosage: 10 MILLIGRAM/SQ. METER
     Route: 065
     Dates: start: 20241001

REACTIONS (2)
  - Diarrhoea [Recovered/Resolved]
  - Anal inflammation [Recovered/Resolved]

NARRATIVE: CASE EVENT DATE: 20241004
